FAERS Safety Report 13731715 (Version 1)
Quarter: 2017Q3

REPORT INFORMATION
  Report Type: Spontaneous
  Country: CA (occurrence: CA)
  Receive Date: 20170707
  Receipt Date: 20170707
  Transmission Date: 20171127
  Serious: Yes (Hospitalization, Other)
  Sender: FDA-Public Use
  Company Number: CA-JNJFOC-20170515639

PATIENT
  Age: 80 Year
  Sex: Male
  Weight: 60.1 kg

DRUGS (2)
  1. IMBRUVICA [Suspect]
     Active Substance: IBRUTINIB
     Indication: CHRONIC LYMPHOCYTIC LEUKAEMIA
     Route: 048
     Dates: start: 20170410, end: 20170510
  2. IMBRUVICA [Suspect]
     Active Substance: IBRUTINIB
     Indication: CHRONIC LYMPHOCYTIC LEUKAEMIA
     Route: 048
     Dates: start: 20170510

REACTIONS (7)
  - Skin warm [Unknown]
  - Atrial fibrillation [Recovered/Resolved]
  - Hernia congenital [Recovered/Resolved]
  - Thrombophlebitis [Recovered/Resolved]
  - Hypersensitivity [Unknown]
  - Rash erythematous [Recovered/Resolved]
  - Skin hypertrophy [Recovered/Resolved]

NARRATIVE: CASE EVENT DATE: 20170426
